FAERS Safety Report 7995143-X (Version None)
Quarter: 2011Q4

REPORT INFORMATION
  Report Type: 
  Country: None (occurrence: None)
  Receive Date: 20111220
  Receipt Date: 20111215
  Transmission Date: 20120403
  Serious: Yes (Hospitalization, Other)
  Sender: FDA-Public Use
  Company Number: FR-GLAXOSMITHKLINE-B0568927A

PATIENT
  Sex: Female

DRUGS (14)
  1. IMOVANE [Suspect]
     Indication: PRODUCT USED FOR UNKNOWN INDICATION
     Route: 048
  2. LASIX [Suspect]
     Indication: PRODUCT USED FOR UNKNOWN INDICATION
     Route: 048
  3. IRBESARTAN [Suspect]
     Indication: HYPERTENSION
     Route: 048
     Dates: start: 20020101
  4. XANAX [Suspect]
     Indication: PRODUCT USED FOR UNKNOWN INDICATION
     Route: 048
  5. BETA-2 MIMETICS [Concomitant]
     Route: 065
  6. PREVISCAN [Suspect]
     Indication: PRODUCT USED FOR UNKNOWN INDICATION
     Route: 048
  7. DUPHALAC [Suspect]
     Indication: PRODUCT USED FOR UNKNOWN INDICATION
     Route: 048
  8. GLUCOPHAGE [Suspect]
     Indication: TYPE 2 DIABETES MELLITUS
     Dosage: 1700MG PER DAY
     Route: 048
     Dates: start: 20020101
  9. POTASSIUM CHLORIDE [Suspect]
     Indication: PRODUCT USED FOR UNKNOWN INDICATION
     Route: 065
  10. ACETAMINOPHEN W/ PROPOXYPHENE HCL [Suspect]
     Indication: PRODUCT USED FOR UNKNOWN INDICATION
     Route: 048
  11. PRAVASTATIN [Suspect]
     Indication: PRODUCT USED FOR UNKNOWN INDICATION
     Route: 048
  12. PAROXETINE HCL [Suspect]
     Indication: DEPRESSION
     Route: 048
     Dates: end: 20040101
  13. MEDIATOR [Suspect]
     Indication: TYPE 2 DIABETES MELLITUS
     Dosage: 150MG SEE DOSAGE TEXT
     Route: 048
     Dates: start: 20020101, end: 20050321
  14. FENOFIBRATE [Concomitant]
     Indication: HYPERCHOLESTEROLAEMIA
     Route: 065

REACTIONS (8)
  - DYSPNOEA EXERTIONAL [None]
  - TRICUSPID VALVE DISEASE [None]
  - WEIGHT DECREASED [None]
  - TACHYCARDIA [None]
  - PULMONARY ARTERIAL HYPERTENSION [None]
  - MITRAL VALVE INCOMPETENCE [None]
  - ASTHENIA [None]
  - AORTIC VALVE INCOMPETENCE [None]
